FAERS Safety Report 5457183-4 (Version None)
Quarter: 2007Q3

REPORT INFORMATION
  Report Type: 
  Country: None (occurrence: None)
  Receive Date: 20070918
  Receipt Date: 20070118
  Transmission Date: 20080115
  Serious: No
  Sender: FDA-Public Use
  Company Number: US-ASTRAZENECA-2007UW01010

PATIENT
  Age: 73 Year
  Sex: Female
  Weight: 65.8 kg

DRUGS (6)
  1. SEROQUEL [Suspect]
     Indication: DEPRESSION
     Dosage: TOOK HALF OF A 100 MG TABLET HS, THEN TOOK HALF A 100 MG TABLET 12 HOURS LATER
     Route: 048
     Dates: start: 20070117
  2. CYMBALTA [Concomitant]
  3. WELLBUTRIN [Concomitant]
  4. VITAMINS [Concomitant]
  5. PREMARIN [Concomitant]
  6. CRESTOR [Concomitant]

REACTIONS (6)
  - CONFUSIONAL STATE [None]
  - COORDINATION ABNORMAL [None]
  - DRY MOUTH [None]
  - FATIGUE [None]
  - LOSS OF CONTROL OF LEGS [None]
  - TONGUE DISORDER [None]
